FAERS Safety Report 5519814-X (Version None)
Quarter: 2007Q4

REPORT INFORMATION
  Report Type: 
  Country: None (occurrence: None)
  Receive Date: 20071116
  Receipt Date: 20071022
  Transmission Date: 20080405
  Serious: No
  Sender: FDA-Public Use
  Company Number: A0677361A

PATIENT
  Age: 59 Year
  Sex: Male
  Weight: 120 kg

DRUGS (4)
  1. COREG CR [Suspect]
     Indication: HYPERTENSION
     Dosage: 20MG PER DAY
     Route: 048
     Dates: start: 20070815
  2. CRESTOR [Concomitant]
  3. ASPIRIN [Concomitant]
  4. MAXZIDE [Concomitant]

REACTIONS (1)
  - ERECTILE DYSFUNCTION [None]
